FAERS Safety Report 17533714 (Version 2)
Quarter: 2020Q2

REPORT INFORMATION
  Report Type: Spontaneous
  Country: US (occurrence: US)
  Receive Date: 20200312
  Receipt Date: 20200406
  Transmission Date: 20200713
  Serious: Yes (Hospitalization, Other)
  Sender: FDA-Public Use
  Company Number: US-PFIZER INC-2020106789

PATIENT
  Age: 39 Year
  Sex: Female
  Weight: 93.89 kg

DRUGS (1)
  1. TYGACIL [Suspect]
     Active Substance: TIGECYCLINE
     Indication: MYCOBACTERIAL INFECTION
     Dosage: 50 MG, 2X/DAY(50MG EVERY 12 HOURS IV )
     Route: 042

REACTIONS (1)
  - Mycobacterial infection [Unknown]

NARRATIVE: CASE EVENT DATE: 202002
